FAERS Safety Report 5715341-5 (Version None)
Quarter: 2008Q2

REPORT INFORMATION
  Report Type: 
  Country: None (occurrence: None)
  Receive Date: 20080423
  Receipt Date: 20080411
  Transmission Date: 20081010
  Serious: Yes (Hospitalization)
  Sender: FDA-Public Use
  Company Number: DE-PFIZER INC-2008032410

PATIENT
  Age: 80 Year
  Sex: Female

DRUGS (2)
  1. UNACID INJECTION [Suspect]
     Indication: PULMONARY SEPSIS
     Route: 042
  2. MARCUMAR [Interacting]
     Route: 048

REACTIONS (4)
  - DRUG INTERACTION [None]
  - HAEMORRHAGE [None]
  - HAEMORRHAGIC ANAEMIA [None]
  - PROTHROMBIN TIME PROLONGED [None]
